FAERS Safety Report 20799846 (Version 1)
Quarter: 2022Q2

REPORT INFORMATION
  Report Type: Spontaneous
  Country: US (occurrence: US)
  Receive Date: 20220509
  Receipt Date: 20220509
  Transmission Date: 20220721
  Serious: No
  Sender: FDA-Public Use
  Company Number: US-UCBSA-2021057616

PATIENT
  Sex: Female

DRUGS (1)
  1. CIMZIA [Suspect]
     Active Substance: CERTOLIZUMAB PEGOL
     Indication: Rheumatoid arthritis
     Dosage: 400 MILLIGRAM, MONTHLY (QM)
     Route: 058
     Dates: start: 202104

REACTIONS (8)
  - Dyspnoea [Unknown]
  - Weight increased [Unknown]
  - Decreased appetite [Unknown]
  - Abdominal pain [Unknown]
  - Dizziness [Unknown]
  - Visual impairment [Unknown]
  - Balance disorder [Unknown]
  - Peripheral swelling [Unknown]
